FAERS Safety Report 20351378 (Version 1)
Quarter: 2022Q1

REPORT INFORMATION
  Report Type: Spontaneous
  Country: US (occurrence: US)
  Receive Date: 20220119
  Receipt Date: 20220119
  Transmission Date: 20220424
  Serious: No
  Sender: FDA-Public Use
  Company Number: US-PFIZER INC-202101416889

PATIENT
  Age: 79 Year
  Sex: Female

DRUGS (1)
  1. IBRANCE [Suspect]
     Active Substance: PALBOCICLIB
     Indication: Neoplasm malignant
     Dosage: 125 MG
     Dates: start: 20210903

REACTIONS (6)
  - Alopecia [Unknown]
  - Stomatitis [Unknown]
  - Hypertension [Unknown]
  - Dry skin [Unknown]
  - Fatigue [Unknown]
  - Dyspnoea [Unknown]
